FAERS Safety Report 7503700-X (Version None)
Quarter: 2011Q2

REPORT INFORMATION
  Report Type: 
  Country: None (occurrence: None)
  Receive Date: 20110518
  Receipt Date: 20110510
  Transmission Date: 20111010
  Serious: Yes (Other)
  Sender: FDA-Public Use
  Company Number: 2011MA004338

PATIENT
  Age: 33 Year
  Sex: Male

DRUGS (4)
  1. MIRTAZAPINE [Suspect]
     Indication: OBSESSIVE-COMPULSIVE DISORDER
     Dosage: 15 MG, HS
     Dates: start: 20090101
  2. MIRTAZAPINE [Suspect]
     Indication: DEPRESSION
     Dosage: 15 MG, HS
     Dates: start: 20090101
  3. MIRTAZAPINE [Suspect]
     Indication: ANXIETY
     Dosage: 15 MG, HS
     Dates: start: 20090101
  4. MIRTAZAPINE [Concomitant]

REACTIONS (4)
  - PRODUCT SUBSTITUTION ISSUE [None]
  - INSOMNIA [None]
  - DRUG INEFFECTIVE [None]
  - MALAISE [None]
